FAERS Safety Report 21732245 (Version 1)
Quarter: 2022Q4

REPORT INFORMATION
  Report Type: Spontaneous
  Country: US (occurrence: None)
  Receive Date: 20221214
  Receipt Date: 20221214
  Transmission Date: 20230113
  Serious: No
  Sender: FDA-Public Use
  Company Number: None

PATIENT
  Sex: Male

DRUGS (1)
  1. LANREOTIDE ACETATE [Suspect]
     Active Substance: LANREOTIDE ACETATE
     Indication: Hypoglycaemia
     Dosage: 120MG MONTHLY SUBCUTANEOUS?
     Route: 058
     Dates: start: 20221206

REACTIONS (2)
  - Product physical issue [None]
  - Therapy interrupted [None]
